FAERS Safety Report 5822517-5 (Version None)
Quarter: 2008Q3

REPORT INFORMATION
  Report Type: 
  Country: None (occurrence: None)
  Receive Date: 20080725
  Receipt Date: 20071130
  Transmission Date: 20090109
  Serious: No
  Sender: FDA-Public Use
  Company Number: US-AMGEN-KDL254992

PATIENT
  Sex: Female
  Weight: 30.4 kg

DRUGS (9)
  1. PROCRIT [Suspect]
     Indication: RENAL FAILURE CHRONIC
     Route: 058
     Dates: start: 20071001
  2. FERROUS SULFATE TAB [Concomitant]
     Route: 048
  3. CALCIUM CARBONATE [Concomitant]
  4. NORVASC [Concomitant]
     Route: 048
  5. CALCITRIOL [Concomitant]
  6. FOLTX [Concomitant]
  7. LASIX [Concomitant]
     Route: 048
  8. FOLIC ACID/CYANOCOBALAMIN PYRIDOXINE [Concomitant]
     Route: 048
  9. PHOSLO [Concomitant]
     Route: 048

REACTIONS (2)
  - ANXIETY [None]
  - INJECTION SITE PAIN [None]
